FAERS Safety Report 25504739 (Version 2)
Quarter: 2025Q3

REPORT INFORMATION
  Report Type: Spontaneous
  Country: US (occurrence: US)
  Receive Date: 20250702
  Receipt Date: 20250917
  Transmission Date: 20251021
  Serious: Yes (Hospitalization, Other)
  Sender: ARDELYX
  Company Number: US-ARDELYX-2025ARDX003680

PATIENT
  Sex: Female

DRUGS (2)
  1. XPHOZAH [Suspect]
     Active Substance: TENAPANOR HYDROCHLORIDE
     Indication: Hyperphosphataemia
     Route: 048
     Dates: start: 20250415, end: 20250515
  2. XPHOZAH [Suspect]
     Active Substance: TENAPANOR HYDROCHLORIDE
     Route: 048
     Dates: start: 20250515

REACTIONS (10)
  - Endoscopic retrograde cholangiopancreatography [Recovering/Resolving]
  - Colonoscopy [Recovering/Resolving]
  - Clostridium difficile infection [Recovering/Resolving]
  - Umbilical hernia repair [Recovering/Resolving]
  - Hospitalisation [Recovering/Resolving]
  - Diarrhoea [Recovering/Resolving]
  - Oral surgery [Recovering/Resolving]
  - Constipation [Not Recovered/Not Resolved]
  - Rehabilitation therapy [Recovering/Resolving]
  - Diarrhoea [Recovered/Resolved]

NARRATIVE: CASE EVENT DATE: 20250101
